FAERS Safety Report 12916807 (Version 1)
Quarter: 2016Q4

REPORT INFORMATION
  Report Type: Spontaneous
  Country: US (occurrence: US)
  Receive Date: 20161107
  Receipt Date: 20161107
  Transmission Date: 20170207
  Serious: No
  Sender: FDA-Public Use
  Company Number: US-AMGEN-USASP2016078629

PATIENT
  Sex: Male

DRUGS (2)
  1. OPDIVO [Concomitant]
     Active Substance: NIVOLUMAB
  2. ARANESP [Suspect]
     Active Substance: DARBEPOETIN ALFA
     Indication: RENAL DISORDER
     Dosage: 300 MUG, QMO
     Route: 065

REACTIONS (1)
  - Haemoglobin decreased [Unknown]
